FAERS Safety Report 8827291 (Version 1)
Quarter: 2012Q4

REPORT INFORMATION
  Report Type: 
  Country: US (occurrence: US)
  Receive Date: 20121005
  Receipt Date: 20121005
  Transmission Date: 20130627
  Serious: Yes (Death)
  Sender: FDA-Public Use
  Company Number: US-ROCHE-1130814

PATIENT
  Sex: Male

DRUGS (4)
  1. RITUXAN [Suspect]
     Indication: CHRONIC LYMPHOCYTIC LEUKAEMIA
     Dosage: 500cc NS
     Route: 042
  2. BENADRYL [Concomitant]
     Route: 050
  3. SOLU-MEDROL [Concomitant]
     Route: 050
  4. TAGAMET [Concomitant]
     Route: 050

REACTIONS (6)
  - Death [Fatal]
  - Malaise [Unknown]
  - Dizziness [Unknown]
  - Pruritus [Unknown]
  - Cold sweat [Unknown]
  - Urticaria [Unknown]
